FAERS Safety Report 14342406 (Version 1)
Quarter: 2018Q1

REPORT INFORMATION
  Report Type: Spontaneous
  Country: RU (occurrence: RU)
  Receive Date: 20180102
  Receipt Date: 20180102
  Transmission Date: 20180509
  Serious: Yes (Hospitalization, Other)
  Sender: FDA-Public Use
  Company Number: RU-BAYER-2017-248054

PATIENT
  Sex: Female

DRUGS (4)
  1. MIRENA [Suspect]
     Active Substance: LEVONORGESTREL
     Dosage: 20 MCG/24HR, CONT
     Route: 015
     Dates: start: 2013, end: 20171121
  2. KLIMADYNON [Concomitant]
     Dosage: 1 DF, BID
  3. CLIMARA [Suspect]
     Active Substance: ESTRADIOL
     Dosage: UNK
     Dates: start: 2016
  4. DIVIGEL [Concomitant]
     Active Substance: ESTRADIOL

REACTIONS (4)
  - Off label use [None]
  - Device use issue [None]
  - Breast cancer female [None]
  - Breast dysplasia [None]

NARRATIVE: CASE EVENT DATE: 2013
